FAERS Safety Report 9244888 (Version 1)
Quarter: 2013Q2

REPORT INFORMATION
  Report Type: Spontaneous
  Country: DE (occurrence: DE)
  Receive Date: 20130422
  Receipt Date: 20130422
  Transmission Date: 20140414
  Serious: Yes (Death)
  Sender: FDA-Public Use
  Company Number: DE-JNJFOC-20130405444

PATIENT
  Age: 49 Year
  Sex: Male
  Weight: 105.9 kg

DRUGS (8)
  1. RISPERDAL [Suspect]
     Indication: PRODUCT USED FOR UNKNOWN INDICATION
     Route: 048
     Dates: start: 20121211, end: 20130107
  2. ZYPREXA [Suspect]
     Indication: PRODUCT USED FOR UNKNOWN INDICATION
     Route: 065
  3. ZYPREXA [Suspect]
     Indication: PRODUCT USED FOR UNKNOWN INDICATION
     Route: 065
     Dates: end: 20121211
  4. METFORMIN [Concomitant]
     Route: 048
     Dates: end: 20130107
  5. VOTUM [Concomitant]
     Route: 048
     Dates: end: 20130107
  6. HCT HEXAL [Concomitant]
     Route: 048
     Dates: end: 20130107
  7. BISOPROLOL [Concomitant]
     Route: 048
     Dates: end: 20130107
  8. AMLODIPINE [Concomitant]
     Route: 048
     Dates: end: 20130107

REACTIONS (3)
  - Death [Fatal]
  - Dyspnoea [Unknown]
  - Breast pain [Unknown]
